FAERS Safety Report 12047146 (Version 1)
Quarter: 2016Q1

REPORT INFORMATION
  Report Type: Not Available
  Country: FR (occurrence: FR)
  Receive Date: 20160209
  Receipt Date: 20160209
  Transmission Date: 20160526
  Serious: Yes (Hospitalization, Other)
  Sender: FDA-Public Use
  Company Number: FR-BEH-2016058571

PATIENT
  Age: 53 Year
  Sex: Male

DRUGS (8)
  1. PIPERACILLIN, TAZOBACTAM [Suspect]
     Active Substance: PIPERACILLIN SODIUM\TAZOBACTAM SODIUM
     Indication: PNEUMONIA
     Route: 042
     Dates: start: 20151210
  2. PIPERACILLIN, TAZOBACTAM [Suspect]
     Active Substance: PIPERACILLIN SODIUM\TAZOBACTAM SODIUM
     Route: 042
     Dates: end: 20151217
  3. XATRAL [Concomitant]
     Active Substance: ALFUZOSIN
  4. LEVETIRACETAM MYLAN PHARMA [Suspect]
     Active Substance: LEVETIRACETAM
     Indication: EPILEPSY
     Dosage: START DATE: ??-NOV-2015
     Route: 048
     Dates: end: 20160104
  5. LAMOTRIGINE ARROW [Suspect]
     Active Substance: LAMOTRIGINE
     Indication: EPILEPSY
     Dosage: START DATE: ??-NOV-2015
     Route: 048
     Dates: end: 20160104
  6. BACTRIM [Suspect]
     Active Substance: SULFAMETHOXAZOLE\TRIMETHOPRIM
     Indication: PNEUMONIA
  7. ZYTREC [Concomitant]
     Indication: PREMEDICATION
  8. PRIVIGEN [Suspect]
     Active Substance: HUMAN IMMUNOGLOBULIN G
     Indication: ENCEPHALITIS
     Route: 042
     Dates: start: 20151215, end: 20151216

REACTIONS (9)
  - Leukopenia [Recovering/Resolving]
  - Influenza [Recovering/Resolving]
  - Rash [Recovering/Resolving]
  - Lymphopenia [Recovering/Resolving]
  - Hepatocellular injury [Recovering/Resolving]
  - Drug reaction with eosinophilia and systemic symptoms [Recovering/Resolving]
  - Pyrexia [Recovering/Resolving]
  - Rash morbilliform [Recovering/Resolving]
  - Asthenia [Recovering/Resolving]

NARRATIVE: CASE EVENT DATE: 20151216
